FAERS Safety Report 5330471-8 (Version None)
Quarter: 2007Q2

REPORT INFORMATION
  Report Type: 
  Country: None (occurrence: None)
  Receive Date: 20070517
  Receipt Date: 20070507
  Transmission Date: 20071010
  Serious: Yes (Hospitalization)
  Sender: FDA-Public Use
  Company Number: 220001M07CAN

PATIENT
  Age: 15 Year
  Sex: Male

DRUGS (1)
  1. SAIZEN [Suspect]
     Dosage: 0.05, 1 IN 1 DAYS, SUBCUTANEOUS
     Route: 058
     Dates: start: 20010611

REACTIONS (2)
  - FALL [None]
  - HAEMATOMA [None]
